FAERS Safety Report 5678435-9 (Version None)
Quarter: 2008Q1

REPORT INFORMATION
  Report Type: 
  Country: None (occurrence: None)
  Receive Date: 20080320
  Receipt Date: 20080314
  Transmission Date: 20080703
  Serious: Yes (Death)
  Sender: FDA-Public Use
  Company Number: OMPQ-UK-0803S-0178

PATIENT
  Age: 66 Year
  Sex: Female

DRUGS (3)
  1. OMNIPAQUE 140 [Suspect]
     Indication: DRUG USE FOR UNKNOWN INDICATION
     Dosage: 90 ML, I.V.
     Route: 042
     Dates: start: 20080310, end: 20080310
  2. OMNIPAQUE 140 [Suspect]
  3. OMNIPAQUE 140 [Suspect]

REACTIONS (4)
  - CARDIAC ARREST [None]
  - MULTI-ORGAN FAILURE [None]
  - MYOCARDIAL INFARCTION [None]
  - WHEEZING [None]
